FAERS Safety Report 6439449-4 (Version None)
Quarter: 2009Q4

REPORT INFORMATION
  Report Type: 
  Country: None (occurrence: None)
  Receive Date: 20091113
  Receipt Date: 20091103
  Transmission Date: 20100525
  Serious: Yes (Hospitalization)
  Sender: FDA-Public Use
  Company Number: US-NOVOPROD-300282

PATIENT
  Age: 85 Year
  Sex: Female
  Weight: 49.887 kg

DRUGS (10)
  1. PRANDIN [Suspect]
     Indication: TYPE 2 DIABETES MELLITUS
     Dosage: 0.5 MG, BID
     Route: 048
     Dates: start: 20060101, end: 20091010
  2. PRANDIN [Suspect]
     Dosage: 1 MG, BID IN THE MORNING AND WITH DINNER
     Route: 048
     Dates: start: 20091010
  3. PRANDIN [Suspect]
     Dosage: 2 MG, QD WITH LUNCH
     Route: 048
     Dates: start: 20091010
  4. LASIX [Concomitant]
     Indication: DRUG USE FOR UNKNOWN INDICATION
     Dosage: UNK
  5. LISINOPRIL [Concomitant]
     Indication: DRUG USE FOR UNKNOWN INDICATION
     Dosage: UNK
  6. METOPROLOL [Concomitant]
     Indication: DRUG USE FOR UNKNOWN INDICATION
     Dosage: UNK
  7. SIMVASTATIN [Concomitant]
     Indication: DRUG USE FOR UNKNOWN INDICATION
     Dosage: UNK
  8. ACIDOPHILUS [Concomitant]
     Indication: DRUG USE FOR UNKNOWN INDICATION
     Dosage: UNK
  9. ASPIRIN [Concomitant]
     Indication: DRUG USE FOR UNKNOWN INDICATION
     Dosage: UNK
  10. CHEMOTHERAPEUTICS NOS [Concomitant]
     Indication: BREAST CANCER
     Dosage: UNK

REACTIONS (4)
  - BLOOD GLUCOSE FLUCTUATION [None]
  - BODY TEMPERATURE INCREASED [None]
  - FLUSHING [None]
  - HERPES ZOSTER [None]
